FAERS Safety Report 18957460 (Version 2)
Quarter: 2021Q3

REPORT INFORMATION
  Report Type: Spontaneous
  Country: US (occurrence: US)
  Receive Date: 20210302
  Receipt Date: 20210804
  Transmission Date: 20211014
  Serious: No
  Sender: FDA-Public Use
  Company Number: US-ALLERGAN-2101863US

PATIENT
  Age: 60 Year
  Sex: Female
  Weight: 62.13 kg

DRUGS (31)
  1. METOPROLOL. [Concomitant]
     Active Substance: METOPROLOL
     Indication: BLOOD PRESSURE MEASUREMENT
  2. FOLIC ACID. [Concomitant]
     Active Substance: FOLIC ACID
     Indication: THERAPEUTIC RESPONSE DECREASED
  3. LISINOPRIL. [Concomitant]
     Active Substance: LISINOPRIL
     Indication: BLOOD PRESSURE MEASUREMENT
  4. CLONAZEPAM. [Concomitant]
     Active Substance: CLONAZEPAM
     Indication: ANXIETY
  5. PHENERGAN [Concomitant]
     Active Substance: PROMETHAZINE HYDROCHLORIDE
     Indication: ABDOMINAL DISCOMFORT
  6. VITAMIN B12 [Concomitant]
     Active Substance: CYANOCOBALAMIN
     Indication: SUPPLEMENTATION THERAPY
  7. VITAMIN B6 [Concomitant]
     Active Substance: PYRIDOXINE HYDROCHLORIDE
     Indication: NEUROPATHY PERIPHERAL
  8. NORCO [Suspect]
     Active Substance: ACETAMINOPHEN\HYDROCODONE BITARTRATE
     Indication: PAIN
     Dosage: 10 MG, TID
     Route: 048
     Dates: start: 2001
  9. MORPHINE SULFATE UNK [Suspect]
     Active Substance: MORPHINE SULFATE
     Indication: PAIN
     Dosage: 30 MG, BID
     Route: 048
     Dates: start: 2010
  10. AMITRIPTYLINE [Concomitant]
     Active Substance: AMITRIPTYLINE
     Indication: PAIN IN EXTREMITY
  11. FLEXERIL [Concomitant]
     Active Substance: CYCLOBENZAPRINE HYDROCHLORIDE
     Indication: MUSCLE SPASMS
  12. MARIJUANA [Concomitant]
     Active Substance: CANNABIS SATIVA SUBSP. INDICA TOP
     Indication: BACK PAIN
  13. VITAMIN B6 [Concomitant]
     Active Substance: PYRIDOXINE HYDROCHLORIDE
     Indication: SUPPLEMENTATION THERAPY
  14. GABAPENTIN. [Concomitant]
     Active Substance: GABAPENTIN
     Indication: NEURALGIA
  15. PRAVASTATIN. [Concomitant]
     Active Substance: PRAVASTATIN
     Indication: BLOOD CHOLESTEROL INCREASED
  16. METOPROLOL. [Concomitant]
     Active Substance: METOPROLOL
     Indication: CARDIAC DISORDER
  17. METHOTREXATE. [Concomitant]
     Active Substance: METHOTREXATE
     Indication: SJOGREN^S SYNDROME
  18. METHOTREXATE. [Concomitant]
     Active Substance: METHOTREXATE
     Indication: SPONDYLITIS
  19. VITAMIN D3 [Concomitant]
     Active Substance: CHOLECALCIFEROL
     Indication: SUPPLEMENTATION THERAPY
  20. PUMPKIN SEED OIL [Concomitant]
     Indication: ALOPECIA
  21. PILOCARPINE. [Concomitant]
     Active Substance: PILOCARPINE
     Indication: DRY EYE
  22. NP?THYROID [Concomitant]
     Indication: HYPOTHYROIDISM
  23. AMITRIPTYLINE [Concomitant]
     Active Substance: AMITRIPTYLINE
     Indication: RESTLESS LEGS SYNDROME
  24. METFORMIN [Concomitant]
     Active Substance: METFORMIN HYDROCHLORIDE
     Indication: GLUCOSE TOLERANCE IMPAIRED
  25. VITAMIN B6 [Concomitant]
     Active Substance: PYRIDOXINE HYDROCHLORIDE
     Indication: PAIN
  26. VITAMIN C [Concomitant]
     Active Substance: ASCORBIC ACID
     Indication: IMMUNE SYSTEM DISORDER
  27. DIINDOLYLMETHANE [Concomitant]
     Active Substance: 3,3^-DIINDOLYLMETHANE
     Indication: HORMONE LEVEL ABNORMAL
  28. PILOCARPINE. [Concomitant]
     Active Substance: PILOCARPINE
     Indication: DRY MOUTH
  29. HYDROXYCHLOROQUINE [Concomitant]
     Active Substance: HYDROXYCHLOROQUINE
     Indication: SJOGREN^S SYNDROME
  30. ZINC. [Concomitant]
     Active Substance: ZINC
     Indication: IMMUNE SYSTEM DISORDER
  31. FLAXSEED [Concomitant]
     Active Substance: FLAX SEED
     Indication: BLOOD CHOLESTEROL

REACTIONS (7)
  - Dysphagia [Recovering/Resolving]
  - Injury associated with device [Recovered/Resolved]
  - Constipation [Recovering/Resolving]
  - Device operational issue [Recovered/Resolved]
  - Diarrhoea [Recovering/Resolving]
  - Abdominal distension [Recovering/Resolving]
  - Abdominal pain upper [Recovering/Resolving]

NARRATIVE: CASE EVENT DATE: 2020
